FAERS Safety Report 22259815 (Version 9)
Quarter: 2024Q2

REPORT INFORMATION
  Report Type: Report from Study
  Country: US (occurrence: US)
  Receive Date: 20230427
  Receipt Date: 20240429
  Transmission Date: 20240715
  Serious: Yes (Other)
  Sender: FDA-Public Use
  Company Number: US-002147023-NVSC2023US094841

PATIENT
  Sex: Male

DRUGS (13)
  1. ENTRESTO [Suspect]
     Active Substance: SACUBITRIL\VALSARTAN
     Indication: Product used for unknown indication
     Dosage: 1.5 DOSAGE FORM
     Route: 065
  2. ENTRESTO [Suspect]
     Active Substance: SACUBITRIL\VALSARTAN
     Dosage: UNK (24/26 MG AM, 49/51 MG PM)
     Route: 065
     Dates: start: 20230327
  3. ENTRESTO [Suspect]
     Active Substance: SACUBITRIL\VALSARTAN
     Dosage: UNK (97/103 MG), BID
     Route: 065
     Dates: start: 20230803
  4. METOPROLOL [Suspect]
     Active Substance: METOPROLOL
     Indication: Product used for unknown indication
     Dosage: UNK
     Route: 065
     Dates: start: 20230322
  5. METOPROLOL [Suspect]
     Active Substance: METOPROLOL
     Dosage: UNK (INCREASED DOSE)
     Route: 065
  6. FARXIGA [Concomitant]
     Active Substance: DAPAGLIFLOZIN PROPANEDIOL
     Indication: Left ventricular failure
     Dosage: UNK
     Route: 065
     Dates: start: 20230803
  7. FARXIGA [Concomitant]
     Active Substance: DAPAGLIFLOZIN PROPANEDIOL
     Dosage: 10 MG, DAILY
     Route: 065
  8. TOPROL XL [Concomitant]
     Active Substance: METOPROLOL SUCCINATE
     Indication: Product used for unknown indication
     Dosage: 3.75 MG, DAILY
     Route: 065
     Dates: start: 20230908
  9. TOPROL XL [Concomitant]
     Active Substance: METOPROLOL SUCCINATE
     Dosage: 2 DOSAGE FORM (50 MG)
     Route: 048
  10. SPIRONOLACTONE [Concomitant]
     Active Substance: SPIRONOLACTONE
     Indication: Product used for unknown indication
     Dosage: 12.5 MG, DAILY (IN 4 WEEKS IF HE TOLERATED INCREASE IN TOPROL-XL AND HE WOULD GO UP ON SPIRONOLACTON
     Route: 048
     Dates: start: 20230908
  11. ELIQUIS [Concomitant]
     Active Substance: APIXABAN
     Indication: Product used for unknown indication
     Dosage: 1 DOSAGE FORM, BID (BY MOUTH)
     Route: 048
     Dates: start: 20230417
  12. LIPITOR [Concomitant]
     Active Substance: ATORVASTATIN CALCIUM
     Indication: Product used for unknown indication
     Dosage: 1 DOSAGE FORM (BY MOUTH), DAILY
     Route: 048
     Dates: start: 20230803
  13. ATARAX [Concomitant]
     Active Substance: HYDROXYZINE HYDROCHLORIDE
     Indication: Depression
     Dosage: 1 DOSAGE FORM, TID (DAILY AS NEEDED)
     Route: 048
     Dates: start: 20230326

REACTIONS (13)
  - Loss of consciousness [Unknown]
  - Hypotension [Recovering/Resolving]
  - Dyspnoea [Unknown]
  - Blood sodium decreased [Unknown]
  - Balance disorder [Unknown]
  - Dizziness [Recovering/Resolving]
  - Panic attack [Recovered/Resolved]
  - Abdominal distension [Recovered/Resolved]
  - Blood glucose decreased [Unknown]
  - Weight increased [Unknown]
  - Asthenia [Unknown]
  - Wrong technique in product usage process [Recovered/Resolved]
  - Incorrect dose administered [Unknown]
